FAERS Safety Report 11506147 (Version 1)
Quarter: 2015Q3

REPORT INFORMATION
  Report Type: Spontaneous
  Country: US (occurrence: US)
  Receive Date: 20150915
  Receipt Date: 20150915
  Transmission Date: 20151125
  Serious: No
  Sender: FDA-Public Use
  Company Number: US-ROCHE-789412

PATIENT
  Age: 50 Year
  Sex: Male

DRUGS (2)
  1. PEGASYS [Suspect]
     Active Substance: PEGINTERFERON ALFA-2A
     Indication: CHRONIC HEPATITIS C
     Route: 065
  2. RIBAVIRIN. [Suspect]
     Active Substance: RIBAVIRIN
     Indication: CHRONIC HEPATITIS C
     Dosage: FREQUENCY: PER DAY IN DIVIDED DOSES
     Route: 065

REACTIONS (5)
  - Feeling abnormal [Unknown]
  - Feeling of body temperature change [Unknown]
  - Bronchitis [Unknown]
  - Hypophagia [Unknown]
  - Anaemia [Unknown]

NARRATIVE: CASE EVENT DATE: 20110711
